FAERS Safety Report 20717716 (Version 1)
Quarter: 2022Q2

REPORT INFORMATION
  Report Type: Spontaneous
  Country: JP (occurrence: JP)
  Receive Date: 20220417
  Receipt Date: 20220417
  Transmission Date: 20220721
  Serious: Yes (Death, Hospitalization, Other)
  Sender: FDA-Public Use
  Company Number: JP-ONO-2019JP001741

PATIENT
  Age: 44 Year
  Sex: Male
  Weight: 74 kg

DRUGS (4)
  1. OPDIVO [Suspect]
     Active Substance: NIVOLUMAB
     Indication: Gastric cancer
     Dosage: 240 MG/BODY/DAY
     Route: 041
     Dates: start: 20181217
  2. OPDIVO [Suspect]
     Active Substance: NIVOLUMAB
     Indication: Gastrooesophageal cancer
  3. OPDIVO [Suspect]
     Active Substance: NIVOLUMAB
     Indication: Metastases to liver
  4. OPDIVO [Suspect]
     Active Substance: NIVOLUMAB
     Indication: Metastases to lymph nodes

REACTIONS (2)
  - Decreased appetite [Not Recovered/Not Resolved]
  - Malignant neoplasm progression [Fatal]

NARRATIVE: CASE EVENT DATE: 20190108
